FAERS Safety Report 8839550 (Version 1)
Quarter: 2012Q4

REPORT INFORMATION
  Report Type: 
  Country: FR (occurrence: FR)
  Receive Date: 20121015
  Receipt Date: 20121015
  Transmission Date: 20130627
  Serious: Yes (Hospitalization, Other)
  Sender: FDA-Public Use
  Company Number: PHHY2012FR090076

PATIENT
  Age: 90 Year
  Sex: Female

DRUGS (9)
  1. GLIVEC [Suspect]
     Indication: CHRONIC MYELOID LEUKAEMIA
     Dosage: 1 DF (1 capsule 3 times daily), TID
     Route: 048
     Dates: start: 2011, end: 20120903
  2. ISOPTINE [Concomitant]
     Dosage: 240 mg at 1 slow release daily
     Route: 048
  3. LEVOTHYROX [Concomitant]
     Dosage: 50 ug, 1.5 daily
     Route: 048
  4. ESOMEPRAZOLE [Concomitant]
     Dosage: 20 mg, 1 tablet daily
     Route: 048
  5. PARACETAMOL [Concomitant]
     Dosage: 1 g, 3 tablets daily
  6. NORMACOL [Concomitant]
  7. TRANSIPEG [Concomitant]
     Dosage: 5.9 g, 4 times per day
     Route: 048
  8. TEMESTA [Concomitant]
     Dosage: 1 g, 1 tablet daily
     Route: 048
  9. LAROSCORBINE [Concomitant]
     Dosage: 1 g/ 5mL x1 daily
     Route: 048

REACTIONS (6)
  - Cerebral haematoma [Not Recovered/Not Resolved]
  - Epilepsy [Recovered/Resolved with Sequelae]
  - Craniocerebral injury [Unknown]
  - Coma [Unknown]
  - Fall [Unknown]
  - Malaise [Unknown]
